FAERS Safety Report 5493486-5 (Version None)
Quarter: 2007Q4

REPORT INFORMATION
  Report Type: 
  Country: None (occurrence: None)
  Receive Date: 20071019
  Receipt Date: 20071004
  Transmission Date: 20080405
  Serious: Yes (Other)
  Sender: FDA-Public Use
  Company Number: ENT 2007-0142

PATIENT
  Age: 74 Year
  Sex: Male

DRUGS (10)
  1. COMTAN [Suspect]
     Indication: PARKINSON'S DISEASE
     Dosage: SEE IMAGE
     Route: 048
     Dates: start: 20070707, end: 20070807
  2. COMTAN [Suspect]
     Indication: PARKINSON'S DISEASE
     Dosage: SEE IMAGE
     Route: 048
     Dates: start: 20070808, end: 20070815
  3. COMTAN [Suspect]
     Indication: PARKINSON'S DISEASE
     Dosage: SEE IMAGE
     Route: 048
     Dates: start: 20070820
  4. PRAMIPEXOLE DIHYDROCHLORIDE [Suspect]
     Dosage: 1.5 MG; 3 MG; 1.5 MG, 3 MG
     Route: 048
     Dates: end: 20070801
  5. PRAMIPEXOLE DIHYDROCHLORIDE [Suspect]
     Dosage: 1.5 MG; 3 MG; 1.5 MG, 3 MG
     Route: 048
     Dates: start: 20070801, end: 20070816
  6. PRAMIPEXOLE DIHYDROCHLORIDE [Suspect]
     Dosage: 1.5 MG; 3 MG; 1.5 MG, 3 MG
     Route: 048
     Dates: start: 20070817, end: 20070826
  7. PRAMIPEXOLE DIHYDROCHLORIDE [Suspect]
     Dosage: 1.5 MG; 3 MG; 1.5 MG, 3 MG
     Route: 048
     Dates: start: 20070827
  8. CARBIDOPA AND LEVODOPA [Concomitant]
  9. MADOPAR [Concomitant]
  10. FP [Concomitant]

REACTIONS (4)
  - CONFUSIONAL STATE [None]
  - DELUSION [None]
  - HALLUCINATION [None]
  - RESTLESSNESS [None]
